FAERS Safety Report 24555320 (Version 1)
Quarter: 2024Q4

REPORT INFORMATION
  Report Type: Report from Study
  Country: US (occurrence: US)
  Receive Date: 20241028
  Receipt Date: 20241028
  Transmission Date: 20250114
  Serious: Yes (Disabling)
  Sender: JOHNSON AND JOHNSON
  Company Number: US-JNJFOC-20241069089

PATIENT
  Age: 63 Year
  Sex: Male

DRUGS (1)
  1. REMICADE [Suspect]
     Active Substance: INFLIXIMAB
     Indication: Colitis ulcerative
     Route: 041
     Dates: start: 201804, end: 201808

REACTIONS (1)
  - Optic nerve injury [Not Recovered/Not Resolved]

NARRATIVE: CASE EVENT DATE: 20180101
